FAERS Safety Report 9469927 (Version 1)
Quarter: 2013Q3

REPORT INFORMATION
  Report Type: Spontaneous
  Country: US (occurrence: None)
  Receive Date: 20130820
  Receipt Date: 20130820
  Transmission Date: 20140515
  Serious: Yes (Life-Threatening, Hospitalization)
  Sender: FDA-Public Use
  Company Number: None

PATIENT
  Age: 59 Year
  Sex: Female
  Weight: 71.6 kg

DRUGS (1)
  1. ONDANSETRON [Suspect]
     Indication: NAUSEA
     Route: 042
     Dates: start: 20130612, end: 20130612

REACTIONS (8)
  - Anaphylactic reaction [None]
  - Fall [None]
  - Facial bones fracture [None]
  - Convulsion [None]
  - Pneumomediastinum [None]
  - Tracheal injury [None]
  - Oesophageal injury [None]
  - Iatrogenic injury [None]
